FAERS Safety Report 24827396 (Version 2)
Quarter: 2025Q1

REPORT INFORMATION
  Report Type: Report from Study
  Country: US (occurrence: US)
  Receive Date: 20250109
  Receipt Date: 20250110
  Transmission Date: 20250408
  Serious: No
  Sender: HLS THERAPEUTICS
  Company Number: US-HLS-202402501

PATIENT
  Age: 38 Year
  Sex: Male

DRUGS (1)
  1. CLOZAPINE [Suspect]
     Active Substance: CLOZAPINE
     Indication: Product used for unknown indication
     Route: 065

REACTIONS (4)
  - Psychiatric decompensation [Unknown]
  - Lymphocyte count abnormal [Unknown]
  - Glycosylated haemoglobin abnormal [Unknown]
  - Blood triglycerides abnormal [Unknown]

NARRATIVE: CASE EVENT DATE: 20241217
